FAERS Safety Report 8062507-8 (Version None)
Quarter: 2012Q1

REPORT INFORMATION
  Report Type: 
  Country: None (occurrence: None)
  Receive Date: 20120117
  Receipt Date: 20120111
  Transmission Date: 20120608
  Serious: Yes (Hospitalization, Other)
  Sender: FDA-Public Use
  Company Number: 2010SP019823

PATIENT
  Age: 30 Year
  Sex: Female
  Weight: 92.5338 kg

DRUGS (6)
  1. NUVARING [Suspect]
     Indication: MENORRHAGIA
     Dates: start: 20071126, end: 20080330
  2. NUVARING [Suspect]
     Indication: CONTRACEPTION
     Dates: start: 20071126, end: 20080330
  3. ACETAMINOPHEN [Concomitant]
  4. DIPHENOXYLATE [Concomitant]
  5. LEVOXYL [Concomitant]
  6. MULTI-VITAMINS [Concomitant]

REACTIONS (33)
  - PULMONARY EMBOLISM [None]
  - FIBROMYALGIA [None]
  - LOW DENSITY LIPOPROTEIN INCREASED [None]
  - CONSTIPATION [None]
  - DYSPNOEA [None]
  - THROMBOSIS [None]
  - BREAST HAEMORRHAGE [None]
  - INTERNATIONAL NORMALISED RATIO INCREASED [None]
  - BLOOD CHOLESTEROL INCREASED [None]
  - MENSTRUATION IRREGULAR [None]
  - DIZZINESS [None]
  - CHEST PAIN [None]
  - MIGRAINE [None]
  - PAIN IN EXTREMITY [None]
  - BREAST DISCHARGE [None]
  - MAMMARY DUCT ECTASIA [None]
  - PULMONARY HYPERTENSION [None]
  - PELVIC PAIN [None]
  - BREAST PAIN [None]
  - DIARRHOEA [None]
  - ANXIETY [None]
  - PRURITUS [None]
  - VAGINAL INFECTION [None]
  - VERTIGO [None]
  - ABDOMINAL PAIN [None]
  - VOMITING [None]
  - DEHYDRATION [None]
  - DYSPNOEA EXERTIONAL [None]
  - HYPOTHYROIDISM [None]
  - OVARIAN CYST [None]
  - CYSTITIS INTERSTITIAL [None]
  - ASTHENIA [None]
  - PELVIC INFLAMMATORY DISEASE [None]
